FAERS Safety Report 7197583-8 (Version None)
Quarter: 2010Q4

REPORT INFORMATION
  Report Type: 
  Country: None (occurrence: None)
  Receive Date: 20101227
  Receipt Date: 20101217
  Transmission Date: 20110411
  Serious: Yes (Hospitalization, Other)
  Sender: FDA-Public Use
  Company Number: FR-ELI_LILLY_AND_COMPANY-FR201012004661

PATIENT
  Age: 8 Year

DRUGS (1)
  1. UMATROPE [Suspect]
     Dosage: 0.035 MG/KG, DAILY (1/D)
     Route: 058
     Dates: start: 20090601

REACTIONS (1)
  - MELANOMA RECURRENT [None]
